FAERS Safety Report 15159801 (Version 1)
Quarter: 2018Q3

REPORT INFORMATION
  Report Type: Spontaneous
  Country: US (occurrence: US)
  Receive Date: 20180620
  Receipt Date: 20180620
  Transmission Date: 20181010
  Serious: No
  Sender: FDA-Public Use
  Company Number: None

PATIENT
  Age: 22 Year
  Sex: Male
  Weight: 60.75 kg

DRUGS (1)
  1. BUSPIRONE [Suspect]
     Active Substance: BUSPIRONE HYDROCHLORIDE
     Indication: ANXIETY
     Dosage: ?          QUANTITY:.5 TABLET(S);?
     Route: 048
     Dates: start: 20180611, end: 20180618

REACTIONS (5)
  - Anhedonia [None]
  - Depressed mood [None]
  - Emotional disorder [None]
  - Anxiety [None]
  - Fear [None]

NARRATIVE: CASE EVENT DATE: 20180618
